FAERS Safety Report 7113519-X (Version None)
Quarter: 2010Q4

REPORT INFORMATION
  Report Type: 
  Country: None (occurrence: None)
  Receive Date: 20101119
  Receipt Date: 20101110
  Transmission Date: 20110411
  Serious: No
  Sender: FDA-Public Use
  Company Number: US-PFIZER INC-2010147099

PATIENT
  Sex: Male
  Weight: 88.904 kg

DRUGS (11)
  1. EFFEXOR XR [Suspect]
     Indication: ANXIETY
     Dosage: UNKNOWN
     Route: 048
     Dates: start: 20051101
  2. EFFEXOR XR [Suspect]
     Indication: DEPRESSION
     Dosage: 187.5 MG, 1X/DAY
     Route: 048
     Dates: start: 20051101
  3. NORTRIPTYLINE [Suspect]
     Dosage: 10 MG, 1X/DAY
     Route: 048
     Dates: start: 20101104
  4. CARBIDOPA + LEVODOPA [Concomitant]
     Dosage: 25/250 DOSE, 5X/DAY
     Route: 048
  5. CARBIDOPA [Concomitant]
     Dosage: 25 MG,  5X/DAY
     Route: 048
  6. SINEMET CR [Concomitant]
     Dosage: 50/200 DOSE
     Route: 048
  7. CLONAZEPAM [Concomitant]
     Dosage: 0.5 MG, 1X/DAY
     Route: 048
  8. GABAPENTIN [Concomitant]
     Dosage: 100 MG, 3X/DAY
     Route: 048
  9. LORAZEPAM [Concomitant]
     Dosage: 0.5 MG 2X/DAY, AS NEEDED
     Route: 048
  10. PERCOCET [Concomitant]
     Dosage: UNKNOWN DOSE 2-3X/DAY, AS NEEDED
     Route: 048
  11. FLOMAX [Concomitant]
     Dosage: UNKNOWN DOSE
     Route: 048

REACTIONS (8)
  - ANXIETY [None]
  - DRUG WITHDRAWAL SYNDROME [None]
  - FEELING ABNORMAL [None]
  - FEELING OF BODY TEMPERATURE CHANGE [None]
  - OEDEMA PERIPHERAL [None]
  - RESTLESSNESS [None]
  - SLEEP DISORDER [None]
  - URINARY INCONTINENCE [None]
